FAERS Safety Report 24902575 (Version 2)
Quarter: 2025Q1

REPORT INFORMATION
  Report Type: Report from Study
  Country: US (occurrence: US)
  Receive Date: 20250130
  Receipt Date: 20250225
  Transmission Date: 20250408
  Serious: Yes (Other)
  Sender: ROCHE
  Company Number: US-ROCHE-10000190443

PATIENT
  Age: 70 Year
  Sex: Female
  Weight: 102.97 kg

DRUGS (26)
  1. XOLAIR [Suspect]
     Active Substance: OMALIZUMAB
     Indication: Urticaria
     Dosage: DATE OF TREATMENT: 28/MAY/2024, LAST DOSE: /DEC/2024.
     Route: 058
     Dates: start: 2001
  2. XOLAIR [Suspect]
     Active Substance: OMALIZUMAB
     Indication: Asthma
  3. POTASSIUM CHLORIDE [Concomitant]
     Active Substance: POTASSIUM CHLORIDE
     Dosage: 10 MEQ
  4. LEVALBUTEROL HYDROCHLORIDE [Concomitant]
     Active Substance: LEVALBUTEROL HYDROCHLORIDE
  5. VALSARTAN [Concomitant]
     Active Substance: VALSARTAN
  6. DALIRESP [Concomitant]
     Active Substance: ROFLUMILAST
  7. CLONIDINE [Concomitant]
     Active Substance: CLONIDINE
     Dosage: 0.1 IPO
  8. KLOR-CON [Concomitant]
     Active Substance: POTASSIUM CHLORIDE
  9. EDECRIN [Concomitant]
     Active Substance: ETHACRYNIC ACID
  10. XOPENEX [Concomitant]
     Active Substance: LEVALBUTEROL HYDROCHLORIDE
  11. ACETYLCYSTEINE [Concomitant]
     Active Substance: ACETYLCYSTEINE
  12. XOPENEX HFA [Concomitant]
     Active Substance: LEVALBUTEROL TARTRATE
  13. SPIRIVA [Concomitant]
     Active Substance: TIOTROPIUM BROMIDE MONOHYDRATE
  14. DIOVAN [Concomitant]
     Active Substance: VALSARTAN
  15. PLAVIX [Concomitant]
     Active Substance: CLOPIDOGREL BISULFATE
  16. REPATHA [Concomitant]
     Active Substance: EVOLOCUMAB
     Route: 058
  17. GAMMAGARD S/D [Concomitant]
     Active Substance: HUMAN IMMUNOGLOBULIN G
  18. FORMOTEROL [Concomitant]
     Active Substance: FORMOTEROL
  19. CARISOPRODOL [Concomitant]
     Active Substance: CARISOPRODOL
  20. XYZAL [Concomitant]
     Active Substance: LEVOCETIRIZINE DIHYDROCHLORIDE
  21. DILTIAZEM [Concomitant]
     Active Substance: DILTIAZEM
  22. ZOFRAN [Concomitant]
     Active Substance: ONDANSETRON HYDROCHLORIDE
  23. SINGULAIR [Concomitant]
     Active Substance: MONTELUKAST SODIUM
  24. VITAMIN E [Concomitant]
     Active Substance: .ALPHA.-TOCOPHEROL
  25. CALCIUM [Concomitant]
     Active Substance: CALCIUM
  26. VITAMIN D3 [Concomitant]
     Active Substance: CHOLECALCIFEROL

REACTIONS (22)
  - Breast cancer [Unknown]
  - Obstructive sleep apnoea syndrome [Unknown]
  - COVID-19 [Unknown]
  - Fatigue [Unknown]
  - Insomnia [Recovered/Resolved]
  - Road traffic accident [Unknown]
  - Chronic obstructive pulmonary disease [Not Recovered/Not Resolved]
  - Jaw fracture [Recovered/Resolved]
  - Tooth fracture [Recovered/Resolved]
  - Anaphylactic reaction [Unknown]
  - Off label use [Unknown]
  - Asthma [Unknown]
  - Hypoaesthesia [Unknown]
  - Weight decreased [Unknown]
  - Visual field defect [Unknown]
  - Muscular weakness [Unknown]
  - Arthralgia [Unknown]
  - Myalgia [Unknown]
  - Peroneal nerve palsy [Unknown]
  - Orthopnoea [Unknown]
  - Wheezing [Unknown]
  - Dyspnoea [Unknown]

NARRATIVE: CASE EVENT DATE: 20250101
